FAERS Safety Report 7997508-9 (Version None)
Quarter: 2011Q4

REPORT INFORMATION
  Report Type: 
  Country: None (occurrence: None)
  Receive Date: 20111221
  Receipt Date: 20111221
  Transmission Date: 20120403
  Serious: Yes (Disabling, Other)
  Sender: FDA-Public Use
  Company Number: None

PATIENT
  Sex: Female
  Weight: 54.431 kg

DRUGS (1)
  1. TIMOLOL MALEATE [Suspect]
     Indication: GLAUCOMA
     Dosage: ONE DROP IN EACH EYE
     Route: 047
     Dates: start: 20111103, end: 20111210

REACTIONS (5)
  - PRODUCT LABEL ISSUE [None]
  - OCULAR HYPERAEMIA [None]
  - EYE PRURITUS [None]
  - PRODUCT CONTAINER SEAL ISSUE [None]
  - PRODUCT CONTAMINATION [None]
